FAERS Safety Report 15007753 (Version 1)
Quarter: 2018Q2

REPORT INFORMATION
  Report Type: Spontaneous
  Country: DE (occurrence: DE)
  Receive Date: 20180613
  Receipt Date: 20180613
  Transmission Date: 20180711
  Serious: Yes (Congenital Anomaly)
  Sender: FDA-Public Use
  Company Number: DE-MYLANLABS-2018M1038852

PATIENT
  Sex: Female
  Weight: 2.96 kg

DRUGS (4)
  1. HCT [Concomitant]
     Active Substance: HYDROCHLOROTHIAZIDE
     Indication: CONGESTIVE CARDIOMYOPATHY
     Dosage: EXPOSURE UNCERTAIN, PERHAPS FROM WEEK 21.6
     Route: 064
  2. BISOPROLOL [Suspect]
     Active Substance: BISOPROLOL
     Indication: CONGESTIVE CARDIOMYOPATHY
     Dosage: 5 MG, QD, (5 [MG/D ]/ PROBABLY THE ENTIRE PREGNANCY BUT CONFIRMED ONLY UNTIL 21 6/7)
     Route: 064
     Dates: start: 20170210, end: 20170713
  3. EPLERENONE. [Suspect]
     Active Substance: EPLERENONE
     Indication: CONGESTIVE CARDIOMYOPATHY
     Dosage: 25 MG, QD, (25 [MG/D ])
     Route: 064
     Dates: start: 20170210, end: 20170713
  4. CLEXANE [Concomitant]
     Active Substance: ENOXAPARIN SODIUM
     Indication: THROMBOSIS PROPHYLAXIS
     Dosage: 40 MG, QD,40 [MG/D ]/ ROBABLY THE ENTIRE PREGNANCY BUT CONFIRMED ONLY UNTIL 21 6/7
     Route: 064
     Dates: start: 20170210, end: 20170713

REACTIONS (2)
  - Ventricular septal defect [Not Recovered/Not Resolved]
  - Foetal exposure during pregnancy [Unknown]
